FAERS Safety Report 4699299-6 (Version None)
Quarter: 2005Q2

REPORT INFORMATION
  Report Type: 
  Country: None (occurrence: None)
  Receive Date: 20050624
  Receipt Date: 20050623
  Transmission Date: 20051028
  Serious: Yes (Other)
  Sender: FDA-Public Use
  Company Number: US-GLAXOSMITHKLINE-A0563895A

PATIENT
  Sex: Female

DRUGS (4)
  1. ZOFRAN [Suspect]
     Indication: DRUG USE FOR UNKNOWN INDICATION
     Route: 065
  2. RID MOUSSE [Concomitant]
     Route: 061
     Dates: start: 20030801
  3. MECLIZINE [Concomitant]
     Indication: DRUG USE FOR UNKNOWN INDICATION
     Route: 065
  4. PERMETHRIN [Concomitant]
     Route: 061

REACTIONS (3)
  - LICE INFESTATION [None]
  - NORMAL DELIVERY [None]
  - PREMATURE LABOUR [None]
